FAERS Safety Report 16739148 (Version 1)
Quarter: 2019Q3

REPORT INFORMATION
  Report Type: Spontaneous
  Country: US (occurrence: US)
  Receive Date: 20190826
  Receipt Date: 20190826
  Transmission Date: 20191005
  Serious: No
  Sender: FDA-Public Use
  Company Number: US-OREXO US, INC.-ORE201809-000100

PATIENT
  Age: 60 Year
  Sex: Male

DRUGS (1)
  1. ZUBSOLV [Suspect]
     Active Substance: BUPRENORPHINE HYDROCHLORIDE\NALOXONE HYDROCHLORIDE
     Indication: PAIN
     Route: 048

REACTIONS (7)
  - Asthenia [Unknown]
  - Off label use [Unknown]
  - Lethargy [Unknown]
  - Agitation [Unknown]
  - Circulatory collapse [Unknown]
  - Confusional state [Unknown]
  - Dizziness [Unknown]
